FAERS Safety Report 26169125 (Version 1)
Quarter: 2025Q4

REPORT INFORMATION
  Report Type: Spontaneous
  Country: JP (occurrence: JP)
  Receive Date: 20251217
  Receipt Date: 20251217
  Transmission Date: 20260118
  Serious: Yes (Other)
  Sender: ASTELLAS
  Company Number: JP-ASTELLAS-2025-AER-069663

PATIENT
  Age: 75 Year
  Sex: Male

DRUGS (9)
  1. ENFORTUMAB VEDOTIN [Suspect]
     Active Substance: ENFORTUMAB VEDOTIN
     Indication: Transitional cell carcinoma
     Route: 065
  2. GEMCITABINE [Concomitant]
     Active Substance: GEMCITABINE
     Indication: Transitional cell carcinoma
     Route: 065
  3. GEMCITABINE [Concomitant]
     Active Substance: GEMCITABINE
     Route: 065
  4. CISPLATIN [Concomitant]
     Active Substance: CISPLATIN
     Indication: Transitional cell carcinoma
     Route: 065
  5. CISPLATIN [Concomitant]
     Active Substance: CISPLATIN
     Route: 065
  6. AVELUMAB [Concomitant]
     Active Substance: AVELUMAB
     Indication: Transitional cell carcinoma
     Route: 065
  7. PEMBROLIZUMAB [Concomitant]
     Active Substance: PEMBROLIZUMAB
     Indication: Transitional cell carcinoma
     Route: 065
  8. DENOSUMAB [Concomitant]
     Active Substance: DENOSUMAB
     Indication: Transitional cell carcinoma
     Route: 065
  9. ERDAFITINIB [Concomitant]
     Active Substance: ERDAFITINIB
     Indication: Transitional cell carcinoma
     Route: 065

REACTIONS (1)
  - Serous retinal detachment [Unknown]
